FAERS Safety Report 5150443-6 (Version None)
Quarter: 2006Q4

REPORT INFORMATION
  Report Type: 
  Country: None (occurrence: None)
  Receive Date: 20061108
  Receipt Date: 20061031
  Transmission Date: 20070319
  Serious: Yes (Death)
  Sender: FDA-Public Use
  Company Number: HQWYE018101NOV06

PATIENT
  Age: 61 Year
  Sex: Male

DRUGS (5)
  1. MYLOTARG [Suspect]
     Indication: ACUTE MYELOID LEUKAEMIA RECURRENT
     Dosage: 9 MG/M^2 1X PER 1 DAY, INTRAVENOUS DRIP
     Route: 041
     Dates: start: 20060822, end: 20060822
  2. ITRACONAZOLE [Concomitant]
  3. LEVOFLOXACIN [Concomitant]
  4. FAMOTIDINE [Concomitant]
  5. BACTRAMIN 9SULFAMETHOXAZOLE/TRIMETHOPRIM) [Concomitant]

REACTIONS (4)
  - ASPARTATE AMINOTRANSFERASE DECREASED [None]
  - BRONCHOPULMONARY ASPERGILLOSIS [None]
  - HEPATIC FUNCTION ABNORMAL [None]
  - WHITE BLOOD CELL COUNT DECREASED [None]
